FAERS Safety Report 4325240-1 (Version None)
Quarter: 2004Q1

REPORT INFORMATION
  Report Type: 
  Country: None (occurrence: None)
  Receive Date: 20040324
  Receipt Date: 20040317
  Transmission Date: 20041129
  Serious: Yes (Other)
  Sender: FDA-Public Use
  Company Number: 2004-03-1135

PATIENT
  Age: 35 Year
  Sex: Female
  Weight: 50 kg

DRUGS (2)
  1. NEOCLOARITYN (DESLORATADINE) TABLETS [Suspect]
     Indication: DERMATITIS ALLERGIC
     Dosage: 5MG ORAL
     Route: 048
     Dates: start: 20040306, end: 20040306
  2. DIANETTE [Concomitant]

REACTIONS (2)
  - BRONCHOSPASM [None]
  - DYSPNOEA [None]
